FAERS Safety Report 8454805-0 (Version None)
Quarter: 2012Q2

REPORT INFORMATION
  Report Type: 
  Country: None (occurrence: None)
  Receive Date: 20120615
  Receipt Date: 20120615
  Transmission Date: 20120825
  Serious: No
  Sender: FDA-Public Use
  Company Number: None

PATIENT
  Age: 73 Year
  Sex: Male
  Weight: 70.3075 kg

DRUGS (2)
  1. GABAPENTIN [Suspect]
     Indication: SPINAL COLUMN STENOSIS
     Dosage: 100MG TID ORAL
     Route: 048
     Dates: start: 20120519, end: 20120522
  2. GABAPENTIN [Suspect]
     Indication: SPINAL PAIN
     Dosage: 100MG TID ORAL
     Route: 048
     Dates: start: 20120519, end: 20120522

REACTIONS (2)
  - VERTIGO [None]
  - DEPRESSED LEVEL OF CONSCIOUSNESS [None]
